FAERS Safety Report 22534578 (Version 1)
Quarter: 2023Q2

REPORT INFORMATION
  Report Type: Spontaneous
  Country: US (occurrence: US)
  Receive Date: 20230608
  Receipt Date: 20230608
  Transmission Date: 20230721
  Serious: No
  Sender: FDA-Public Use
  Company Number: US-STRIDES ARCOLAB LIMITED-2022SP006358

PATIENT
  Age: 68 Year
  Sex: Female

DRUGS (1)
  1. CINACALCET [Suspect]
     Active Substance: CINACALCET
     Indication: Cutaneous calcification
     Dosage: UNK (LOW-DOSE)
     Route: 065

REACTIONS (2)
  - Hypocalcaemia [Unknown]
  - Off label use [Unknown]
